FAERS Safety Report 5939361-0 (Version None)
Quarter: 2008Q4

REPORT INFORMATION
  Report Type: 
  Country: None (occurrence: None)
  Receive Date: 20081103
  Receipt Date: 20080807
  Transmission Date: 20090506
  Serious: No
  Sender: FDA-Public Use
  Company Number: US-B.I. PHARMACEUTICALS,INC./RIDGEFIELD-2008-BP-12464BP

PATIENT
  Age: 54 Year
  Sex: Male

DRUGS (5)
  1. FLOMAX [Suspect]
     Indication: BENIGN PROSTATIC HYPERPLASIA
     Dosage: .4MG
     Route: 048
     Dates: start: 20080802, end: 20080805
  2. TRICOR [Concomitant]
  3. ZETIA [Concomitant]
  4. FOLIC ACID [Concomitant]
  5. HYDROCODONE BITARTRATE [Concomitant]

REACTIONS (8)
  - BLOOD PRESSURE INCREASED [None]
  - BODY TEMPERATURE INCREASED [None]
  - DEHYDRATION [None]
  - DIZZINESS [None]
  - HEAT STROKE [None]
  - HYPOHIDROSIS [None]
  - NASOPHARYNGITIS [None]
  - RHINORRHOEA [None]
